FAERS Safety Report 15736168 (Version 4)
Quarter: 2019Q1

REPORT INFORMATION
  Report Type: Report from Study
  Country: US (occurrence: US)
  Receive Date: 20181218
  Receipt Date: 20190118
  Transmission Date: 20190417
  Serious: Yes (Hospitalization, Other)
  Sender: FDA-Public Use
  Company Number: US-BAYER-2018-230656

PATIENT
  Age: 62 Year
  Sex: Male
  Weight: 83.5 kg

DRUGS (2)
  1. AVAPRITINIB [Suspect]
     Active Substance: AVAPRITINIB
     Indication: GASTROINTESTINAL STROMAL CANCER
  2. REGORAFENIB. [Suspect]
     Active Substance: REGORAFENIB
     Indication: GASTROINTESTINAL STROMAL CANCER
     Dosage: 160 MG, QD
     Route: 048
     Dates: start: 20181017, end: 20181128

REACTIONS (3)
  - Hepatotoxicity [Recovered/Resolved]
  - Wound dehiscence [Recovered/Resolved]
  - Dyspnoea [Recovered/Resolved]

NARRATIVE: CASE EVENT DATE: 20181128
